FAERS Safety Report 11927841 (Version 1)
Quarter: 2016Q1

REPORT INFORMATION
  Report Type: Report from Study
  Country: US (occurrence: US)
  Receive Date: 20160119
  Receipt Date: 20160119
  Transmission Date: 20160526
  Serious: No
  Sender: FDA-Public Use
  Company Number: US-AMGEN-USASL2016003763

PATIENT
  Age: 37 Year
  Sex: Female

DRUGS (1)
  1. ENBREL [Suspect]
     Active Substance: ETANERCEPT
     Indication: PSORIATIC ARTHROPATHY
     Dosage: 50 MG, QWK
     Route: 065

REACTIONS (12)
  - Malaise [Unknown]
  - Joint stiffness [Unknown]
  - Asthenia [Unknown]
  - Injection site swelling [Unknown]
  - Headache [Unknown]
  - Injection site pruritus [Unknown]
  - Injection site erythema [Unknown]
  - Nausea [Unknown]
  - Fatigue [Unknown]
  - Discomfort [Unknown]
  - Injection site urticaria [Unknown]
  - Arthralgia [Unknown]
